FAERS Safety Report 22382995 (Version 1)
Quarter: 2023Q2

REPORT INFORMATION
  Report Type: Spontaneous
  Country: CN (occurrence: CN)
  Receive Date: 20230530
  Receipt Date: 20230530
  Transmission Date: 20230722
  Serious: Yes (Other)
  Sender: FDA-Public Use
  Company Number: None

PATIENT
  Age: 16 Year
  Sex: Male
  Weight: 47 kg

DRUGS (7)
  1. CYCLOPHOSPHAMIDE [Suspect]
     Active Substance: CYCLOPHOSPHAMIDE
     Indication: White blood cell count
     Dosage: 500 MG, Q12H, DILUTED WITH 250 ML OF 0.9 % SODIUM CHLORIDE, ROUTE: INTRA PUMP INJECTION
     Route: 050
     Dates: start: 20230419, end: 20230421
  2. SODIUM CHLORIDE [Suspect]
     Active Substance: SODIUM CHLORIDE
     Indication: Medication dilution
     Dosage: 0.9% 250 ML, Q12H, USED TO DILUTE 500 MG CYCLOPHOSPHAMIDE, ROUTE: INTRA PUMP INJECTION
     Route: 050
     Dates: start: 20230419, end: 20230421
  3. SODIUM CHLORIDE [Suspect]
     Active Substance: SODIUM CHLORIDE
     Dosage: 0.9% 100 ML, QD, USED TO DILUTE 60 MG EPIRUBICIN HYDROCHLORIDE, ROUTE: INTRA PUMP INJECTION
     Route: 050
     Dates: start: 20230422, end: 20230422
  4. SODIUM CHLORIDE [Suspect]
     Active Substance: SODIUM CHLORIDE
     Dosage: 0.9% 60 ML, QW, USED TO DILUTE 2 MG VINCRISTINE SULFATE, ROUTE: INTRA PUMP INJECTION
     Route: 050
     Dates: start: 20230422, end: 20230429
  5. EPIRUBICIN HYDROCHLORIDE [Suspect]
     Active Substance: EPIRUBICIN HYDROCHLORIDE
     Indication: White blood cell count
     Dosage: 60 MG, QD, DILUTED WITH 100 ML OF 0.9 % SODIUM CHLORIDE, ROUTE: INTRA PUMP INJECTION
     Route: 050
     Dates: start: 20230422, end: 20230422
  6. VINCRISTINE SULFATE [Suspect]
     Active Substance: VINCRISTINE SULFATE
     Indication: White blood cell count
     Dosage: 2 MG, QW, DILUTED WITH 60 ML OF 0.9 % SODIUM CHLORIDE, ROUTE: INTRA PUMP INJECTION
     Route: 050
     Dates: start: 20230422, end: 20230429
  7. IMATINIB MESYLATE [Suspect]
     Active Substance: IMATINIB MESYLATE
     Indication: White blood cell count
     Dosage: 0.4 G, QD
     Route: 048
     Dates: start: 20230422, end: 20230513

REACTIONS (1)
  - Myelosuppression [Recovering/Resolving]

NARRATIVE: CASE EVENT DATE: 20230428
